FAERS Safety Report 5867567-8 (Version None)
Quarter: 2008Q3

REPORT INFORMATION
  Report Type: 
  Country: None (occurrence: None)
  Receive Date: 20080902
  Receipt Date: 20071025
  Transmission Date: 20090109
  Serious: No
  Sender: FDA-Public Use
  Company Number: US-ABBOTT-07P-163-0422446-00

PATIENT
  Sex: Female
  Weight: 64.922 kg

DRUGS (2)
  1. DEPAKOTE ER [Suspect]
     Indication: BIPOLAR DISORDER
     Route: 048
     Dates: start: 20070603, end: 20071001
  2. DEPAKOTE ER [Suspect]
     Route: 048
     Dates: start: 20071001

REACTIONS (2)
  - DRUG LEVEL INCREASED [None]
  - NASOPHARYNGITIS [None]
